FAERS Safety Report 8822856 (Version 1)
Quarter: 2012Q4

REPORT INFORMATION
  Report Type: 
  Country: US (occurrence: US)
  Receive Date: 20121003
  Receipt Date: 20121003
  Transmission Date: 20130627
  Serious: Yes (Other)
  Sender: FDA-Public Use
  Company Number: US-ROCHE-1130680

PATIENT
  Sex: Male

DRUGS (10)
  1. RITUXAN [Suspect]
     Indication: CHRONIC LYMPHOCYTIC LEUKAEMIA
     Route: 042
     Dates: start: 20011024
  2. ECOTRIN [Concomitant]
     Dosage: 1 tablet
     Route: 065
  3. CARTIA XT [Concomitant]
     Route: 065
  4. LIPITOR [Concomitant]
     Route: 065
  5. K-DUR [Concomitant]
     Route: 065
  6. FLOMAX [Concomitant]
     Route: 065
  7. PLAVIX [Concomitant]
     Route: 065
  8. GLYBURIDE [Concomitant]
     Route: 065
  9. DIGOXIN [Concomitant]
     Route: 065
  10. SINGULAIR [Concomitant]
     Route: 065

REACTIONS (1)
  - Hypoglycaemia [Unknown]
